FAERS Safety Report 5499642-4 (Version None)
Quarter: 2007Q4

REPORT INFORMATION
  Report Type: 
  Country: None (occurrence: None)
  Receive Date: 20071026
  Receipt Date: 20070717
  Transmission Date: 20080405
  Serious: Yes (Death)
  Sender: FDA-Public Use
  Company Number: US-SANOFI-SYNTHELABO-A03200701668

PATIENT
  Sex: Female
  Weight: 53.5 kg

DRUGS (11)
  1. VITAMINS [Concomitant]
     Indication: DRUG USE FOR UNKNOWN INDICATION
     Dosage: UNK
     Route: 048
     Dates: start: 20050101
  2. LANOXIN [Concomitant]
     Indication: DRUG USE FOR UNKNOWN INDICATION
     Dosage: MONDAY, WEDNESDAY, FRIDAY
     Route: 048
  3. ARICEPT [Concomitant]
     Indication: DRUG USE FOR UNKNOWN INDICATION
     Dosage: UNK
     Route: 048
     Dates: start: 20030101, end: 20050101
  4. PLAVIX [Suspect]
     Indication: CEREBROVASCULAR ACCIDENT
     Route: 048
     Dates: start: 20000501
  5. VERAPAMIL [Concomitant]
     Dosage: UNK
     Route: 048
     Dates: start: 20000101, end: 20030101
  6. CELEBREX [Concomitant]
     Dosage: UNK
     Route: 048
     Dates: start: 20000101, end: 20030101
  7. TYLENOL (CAPLET) [Concomitant]
     Route: 065
  8. MULTI-VITAMIN [Concomitant]
     Route: 048
  9. CALTRATE + D [Concomitant]
     Dosage: UNK
     Route: 048
  10. LUMIGAN [Concomitant]
     Dosage: UNK
     Route: 047
  11. LEXAPRO [Concomitant]
     Route: 048

REACTIONS (7)
  - CARDIAC FAILURE [None]
  - CEREBROVASCULAR ACCIDENT [None]
  - DYSPHAGIA [None]
  - PNEUMONIA [None]
  - SPEECH DISORDER [None]
  - TRANSIENT ISCHAEMIC ATTACK [None]
  - WRONG TECHNIQUE IN DRUG USAGE PROCESS [None]
